FAERS Safety Report 9117080 (Version 2)
Quarter: 2013Q1

REPORT INFORMATION
  Report Type: Spontaneous
  Country: CH (occurrence: CH)
  Receive Date: 20130208
  Receipt Date: 20130328
  Transmission Date: 20140127
  Serious: Yes (Other)
  Sender: FDA-Public Use
  Company Number: CH-ROCHE-1188567

PATIENT
  Age: 73 Year
  Sex: Female
  Weight: 47 kg

DRUGS (6)
  1. AVASTIN [Suspect]
     Indication: OVARIAN CANCER
     Route: 042
     Dates: start: 20110527, end: 20130118
  2. FRAXIPARIN [Suspect]
     Indication: PRODUCT USED FOR UNKNOWN INDICATION
     Route: 042
     Dates: start: 20130104
  3. LIQUEMINE [Suspect]
     Indication: THROMBOSIS PROPHYLAXIS
     Route: 058
     Dates: start: 20130104
  4. TAXOL [Concomitant]
     Indication: OVARIAN CANCER
  5. CAELYX [Concomitant]
     Indication: OVARIAN CANCER
  6. CARBOPLATINUM [Concomitant]
     Indication: OVARIAN CANCER

REACTIONS (3)
  - Cellulitis [Recovered/Resolved]
  - Chondrocalcinosis [Unknown]
  - Tenosynovitis [Recovered/Resolved]
